FAERS Safety Report 6634684-4 (Version None)
Quarter: 2010Q1

REPORT INFORMATION
  Report Type: 
  Country: None (occurrence: None)
  Receive Date: 20100315
  Receipt Date: 20100310
  Transmission Date: 20100710
  Serious: Yes (Death, Hospitalization, Other)
  Sender: FDA-Public Use
  Company Number: US-BAXTER-2010BH006788

PATIENT
  Sex: Male

DRUGS (1)
  1. HEPARIN SODIUM INJECTION [Suspect]
     Indication: SURGERY
     Route: 065
     Dates: start: 20080201

REACTIONS (4)
  - CARDIOGENIC SHOCK [None]
  - DEATH [None]
  - HYPOTENSION [None]
  - ORGAN FAILURE [None]
